FAERS Safety Report 5957029-1 (Version None)
Quarter: 2008Q4

REPORT INFORMATION
  Report Type: 
  Country: None (occurrence: None)
  Receive Date: 20081118
  Receipt Date: 20080923
  Transmission Date: 20090506
  Serious: No
  Sender: FDA-Public Use
  Company Number: A0748692A

PATIENT

DRUGS (1)
  1. COREG CR [Suspect]
     Route: 048

REACTIONS (2)
  - ABDOMINAL DISTENSION [None]
  - ERUCTATION [None]
